FAERS Safety Report 20083254 (Version 1)
Quarter: 2021Q4

REPORT INFORMATION
  Report Type: Spontaneous
  Country: DE (occurrence: DE)
  Receive Date: 20211117
  Receipt Date: 20211117
  Transmission Date: 20220303
  Serious: Yes (Hospitalization, Other)
  Sender: FDA-Public Use
  Company Number: DE-ADRED-07063-01

PATIENT
  Age: 71 Year
  Sex: Female

DRUGS (3)
  1. APIXABAN [Suspect]
     Active Substance: APIXABAN
     Indication: Product used for unknown indication
     Dosage: 5 MILLIGRAM, (1-0-1-0, TABLETTEN)
     Route: 048
  2. BISOPROLOL [Concomitant]
     Active Substance: BISOPROLOL
     Dosage: 5 MILLIGRAM, (1-0-1-0, TABLETTEN)
     Route: 048
  3. LEVOTHYROXINE [Concomitant]
     Active Substance: LEVOTHYROXINE
     Dosage: 100 MICROGRAM, QD, (1-0-0-0, TABLETTEN)
     Route: 048

REACTIONS (6)
  - Haemoglobin decreased [Unknown]
  - Fatigue [Unknown]
  - Blood loss anaemia [Unknown]
  - Nausea [Unknown]
  - Dyspnoea exertional [Unknown]
  - Asthenia [Unknown]
